FAERS Safety Report 9368025 (Version 1)
Quarter: 2013Q2

REPORT INFORMATION
  Report Type: Spontaneous
  Country: US (occurrence: US)
  Receive Date: 20130625
  Receipt Date: 20130625
  Transmission Date: 20140414
  Serious: No
  Sender: FDA-Public Use
  Company Number: US-ASTELLAS-2013US001473

PATIENT
  Age: 68 Year
  Sex: Female
  Weight: 61 kg

DRUGS (4)
  1. VESICARE [Suspect]
     Indication: HYPERTONIC BLADDER
     Dosage: 5 MG, UID/QD
     Route: 048
  2. ADVAIR [Concomitant]
     Indication: CHRONIC OBSTRUCTIVE PULMONARY DISEASE
     Dosage: 250/50 MG, 1 TAB TWICE DAILY
     Route: 048
  3. PRAVASTATIN [Concomitant]
     Dosage: 40 MG, UID/QD
     Route: 048
  4. ISOSORBIDE [Concomitant]
     Indication: CARDIAC VALVE DISEASE
     Dosage: 30 MG, BID
     Route: 048

REACTIONS (1)
  - Influenza [Recovered/Resolved]
